FAERS Safety Report 20834569 (Version 1)
Quarter: 2022Q2

REPORT INFORMATION
  Report Type: Spontaneous
  Country: US (occurrence: None)
  Receive Date: 20220513
  Receipt Date: 20220513
  Transmission Date: 20220720
  Serious: No
  Sender: FDA-Public Use
  Company Number: None

PATIENT
  Age: 74 Year
  Sex: Female

DRUGS (1)
  1. ERLOTINIB [Suspect]
     Active Substance: ERLOTINIB
     Dosage: 100 MG DAIL ORAL
     Route: 048
     Dates: start: 201910

REACTIONS (2)
  - Hypoaesthesia [None]
  - Micturition urgency [None]

NARRATIVE: CASE EVENT DATE: 20220513
